FAERS Safety Report 5545374-3 (Version None)
Quarter: 2007Q4

REPORT INFORMATION
  Report Type: 
  Country: None (occurrence: None)
  Receive Date: 20071211
  Receipt Date: 20071128
  Transmission Date: 20080405
  Serious: Yes (Hospitalization)
  Sender: FDA-Public Use
  Company Number: US-KINGPHARMUSA00001-K200701537

PATIENT

DRUGS (8)
  1. ALTACE [Suspect]
     Indication: HYPERTENSION
     Dosage: 1U TABLET, QD
     Route: 048
     Dates: end: 20070713
  2. LASIX [Suspect]
     Indication: HYPERTENSION
     Dosage: 1 U, QD
     Route: 048
     Dates: end: 20070713
  3. FENOFIBRATE [Suspect]
     Indication: HYPERCHOLESTEROLAEMIA
     Dosage: 1 U, QD
     Route: 048
     Dates: end: 20070713
  4. AMLOR [Concomitant]
     Indication: HYPERTENSION
     Dosage: 1 U, QD
     Route: 048
     Dates: end: 20070713
  5. TANAKAN                            /01003103/ [Concomitant]
     Dosage: 1 U, QD
     Route: 048
     Dates: end: 20070717
  6. CYCLO 3  /00748701/ [Concomitant]
     Dosage: 2 U, BID
     Route: 048
     Dates: end: 20070717
  7. VASTAREL [Concomitant]
     Dosage: UNK, QD
     Route: 048
     Dates: end: 20070717
  8. MIXTARD    /00634701/ [Concomitant]
     Indication: TYPE 1 DIABETES MELLITUS
     Dosage: UNK, QD
     Route: 058
     Dates: end: 20070717

REACTIONS (7)
  - BLOOD CREATINE PHOSPHOKINASE INCREASED [None]
  - BLOOD CREATININE INCREASED [None]
  - BLOOD UREA INCREASED [None]
  - MUSCLE SPASMS [None]
  - MYOGLOBINAEMIA [None]
  - RENAL FAILURE [None]
  - RHABDOMYOLYSIS [None]
